FAERS Safety Report 15899555 (Version 2)
Quarter: 2019Q2

REPORT INFORMATION
  Report Type: Spontaneous
  Country: US (occurrence: US)
  Receive Date: 20190201
  Receipt Date: 20190606
  Transmission Date: 20190711
  Serious: Yes (Hospitalization, Other)
  Sender: FDA-Public Use
  Company Number: US-ASTRAZENECA-2019SE16507

PATIENT
  Age: 20838 Day
  Sex: Male
  Weight: 158.8 kg

DRUGS (21)
  1. PLETAL [Concomitant]
     Active Substance: CILOSTAZOL
  2. INVOKANA [Concomitant]
     Active Substance: CANAGLIFLOZIN
  3. LANTUS [Concomitant]
     Active Substance: INSULIN GLARGINE
  4. VITAMIN E [Concomitant]
     Active Substance: .ALPHA.-TOCOPHEROL
  5. VALSARTAN. [Concomitant]
     Active Substance: VALSARTAN
  6. POTASSIUM [Concomitant]
     Active Substance: POTASSIUM
  7. TRICOR [Concomitant]
     Active Substance: FENOFIBRATE
  8. PLAVIX [Concomitant]
     Active Substance: CLOPIDOGREL BISULFATE
  9. OXYCODONE [Concomitant]
     Active Substance: OXYCODONE
     Indication: BACK PAIN
  10. ULORIC [Concomitant]
     Active Substance: FEBUXOSTAT
  11. NEXIUM [Suspect]
     Active Substance: ESOMEPRAZOLE MAGNESIUM
     Indication: GASTROOESOPHAGEAL REFLUX DISEASE
     Dosage: GENERIC
     Route: 065
     Dates: start: 20160118, end: 20160218
  12. FUROSEMIDE. [Concomitant]
     Active Substance: FUROSEMIDE
  13. GABAPENTIN. [Concomitant]
     Active Substance: GABAPENTIN
  14. GLIPIZIDE. [Concomitant]
     Active Substance: GLIPIZIDE
  15. NEXIUM [Suspect]
     Active Substance: ESOMEPRAZOLE MAGNESIUM
     Indication: GASTROOESOPHAGEAL REFLUX DISEASE
     Route: 048
     Dates: start: 20120509, end: 20151212
  16. SIMVASTATIN. [Concomitant]
     Active Substance: SIMVASTATIN
  17. METFORMIN [Concomitant]
     Active Substance: METFORMIN HYDROCHLORIDE
  18. LIPITOR [Concomitant]
     Active Substance: ATORVASTATIN CALCIUM
  19. DEXILANT [Suspect]
     Active Substance: DEXLANSOPRAZOLE
     Indication: GASTROOESOPHAGEAL REFLUX DISEASE
     Route: 065
     Dates: start: 2016
  20. ASPIRIN. [Concomitant]
     Active Substance: ASPIRIN
  21. TIZANIDINE. [Concomitant]
     Active Substance: TIZANIDINE

REACTIONS (3)
  - Acute kidney injury [Not Recovered/Not Resolved]
  - Renal failure [Unknown]
  - Chronic kidney disease [Not Recovered/Not Resolved]

NARRATIVE: CASE EVENT DATE: 20131004
